FAERS Safety Report 7519544-9 (Version None)
Quarter: 2011Q2

REPORT INFORMATION
  Report Type: 
  Country: None (occurrence: None)
  Receive Date: 20110602
  Receipt Date: 20110527
  Transmission Date: 20111010
  Serious: Yes (Death, Other)
  Sender: FDA-Public Use
  Company Number: US-PFIZER INC-2011077665

PATIENT
  Sex: Female
  Weight: 47.166 kg

DRUGS (15)
  1. LEXAPRO [Concomitant]
     Dosage: UNK
  2. REVATIO [Suspect]
     Indication: PULMONARY HYPERTENSION
     Dosage: 20 MG, 3X/DAY
     Route: 048
     Dates: start: 20080101
  3. ALDACTONE [Concomitant]
     Dosage: UNK
  4. WARFARIN [Concomitant]
     Dosage: UNK
  5. TRACLEER [Concomitant]
     Dosage: UNK
  6. MEGACE [Concomitant]
     Dosage: 40 MG, 3X/DAY
  7. VITAMIN D [Concomitant]
     Dosage: 5000 MG, DAILY
  8. LASIX [Concomitant]
     Dosage: UNK
  9. VITAMIN D [Concomitant]
     Dosage: 5000 UNITS, WEEKLY
  10. OMEPRAZOLE [Concomitant]
     Dosage: 20 MG, DAILY
  11. CALCIUM WITH VITAMIN D [Concomitant]
     Dosage: 500/800 MG, UNK
  12. PREDNISONE [Concomitant]
     Dosage: UNK
  13. DIGOXIN [Concomitant]
     Dosage: UNK
  14. FOLIC ACID [Concomitant]
     Dosage: 2 MG, DAILY
  15. SACCHAROMYCES BOULARDII [Concomitant]
     Dosage: 250 MG, DAILY

REACTIONS (5)
  - LYMPHOMA [None]
  - ANAEMIA [None]
  - HYPERSPLENISM [None]
  - DEATH [None]
  - HEPATOMEGALY [None]
